FAERS Safety Report 20968560 (Version 1)
Quarter: 2022Q2

REPORT INFORMATION
  Report Type: Spontaneous
  Country: CN (occurrence: CN)
  Receive Date: 20220616
  Receipt Date: 20220616
  Transmission Date: 20220721
  Serious: Yes (Hospitalization)
  Sender: FDA-Public Use
  Company Number: None

PATIENT
  Age: 38 Year
  Sex: Female
  Weight: 50 kg

DRUGS (4)
  1. CYCLOPHOSPHAMIDE [Suspect]
     Active Substance: CYCLOPHOSPHAMIDE
     Indication: Breast cancer female
     Dosage: 870 MG, ONCE DAILY, CYCLOPHOSPHAMIDE 870 MG + 0.9% SODIUM CHLORIDE 100 ML
     Route: 041
     Dates: start: 20220513, end: 20220513
  2. SODIUM CHLORIDE [Suspect]
     Active Substance: SODIUM CHLORIDE
     Indication: Medication dilution
     Dosage: 100 ML, QD, CYCLOPHOSPHAMIDE 870 MG + 0.9% SODIUM CHLORIDE 100 ML
     Route: 041
     Dates: start: 20220513, end: 20220513
  3. SODIUM CHLORIDE [Suspect]
     Active Substance: SODIUM CHLORIDE
     Dosage: 200 ML, QD, DOCETAXEL 108 MG + 0.9% SODIUM CHLORIDE 200 ML
     Route: 041
     Dates: start: 20220513, end: 20220513
  4. DOCETAXEL [Suspect]
     Active Substance: DOCETAXEL
     Indication: Breast cancer female
     Dosage: 108 MG ONCE A DAY, DOCETAXEL 108 MG + 0.9% SODIUM CHLORIDE 200 ML
     Route: 041
     Dates: start: 20220513, end: 20220513

REACTIONS (2)
  - White blood cell count decreased [Recovering/Resolving]
  - Neutrophil count decreased [Recovering/Resolving]

NARRATIVE: CASE EVENT DATE: 20220520
